FAERS Safety Report 14959334 (Version 1)
Quarter: 2018Q3

REPORT INFORMATION
  Report Type: Spontaneous
  Country: US (occurrence: US)
  Receive Date: 20180531
  Receipt Date: 20180531
  Transmission Date: 20181010
  Serious: Yes (Other)
  Sender: FDA-Public Use
  Company Number: US-B. BRAUN MEDICAL INC.-2048800

PATIENT
  Age: 63 Year
  Sex: Male

DRUGS (1)
  1. HESPAN [Suspect]
     Active Substance: HETASTARCH\SODIUM CHLORIDE
     Indication: HAEMODIALYSIS
     Dates: end: 20171112

REACTIONS (2)
  - Blood urine present [None]
  - Haemorrhage [Not Recovered/Not Resolved]
